FAERS Safety Report 7806467-0 (Version None)
Quarter: 2011Q4

REPORT INFORMATION
  Report Type: 
  Country: None (occurrence: None)
  Receive Date: 20111007
  Receipt Date: 20111007
  Transmission Date: 20120403
  Serious: Yes (Hospitalization)
  Sender: FDA-Public Use
  Company Number: None

PATIENT
  Age: 57 Year
  Sex: Male
  Weight: 79.8331 kg

DRUGS (2)
  1. LISTERINE POCKETPAK COOLMINT (ORAL CARE PRODUCTS) FILMSTRIP [Suspect]
     Indication: BREATH ODOUR
     Dosage: 1-3 STRIPS DAILY ORAL
     Route: 048
     Dates: end: 20110913
  2. ZOCOR [Concomitant]

REACTIONS (1)
  - PALPITATIONS [None]
